FAERS Safety Report 10738929 (Version 1)
Quarter: 2015Q1

REPORT INFORMATION
  Report Type: Spontaneous
  Country: DE (occurrence: DE)
  Receive Date: 20150126
  Receipt Date: 20150126
  Transmission Date: 20150721
  Serious: Yes (Other)
  Sender: FDA-Public Use
  Company Number: DE-PFIZER INC-2015016728

PATIENT
  Age: 76 Year
  Sex: Female
  Weight: 71 kg

DRUGS (3)
  1. RAMIPRIL COMP [Suspect]
     Active Substance: HYDROCHLOROTHIAZIDE\RAMIPRIL
     Indication: HYPERTONIA
     Dosage: 1 DF, DAILY
     Route: 048
     Dates: start: 20141101, end: 20141103
  2. RAMIPRIL. [Suspect]
     Active Substance: RAMIPRIL
     Indication: HYPERTENSION
     Dosage: 1 DF, DAILY
     Route: 048
  3. RAMIPRIL COMP [Suspect]
     Active Substance: HYDROCHLOROTHIAZIDE\RAMIPRIL
     Indication: HYPERTENSION

REACTIONS (4)
  - Gouty arthritis [Recovered/Resolved]
  - Joint range of motion decreased [Recovered/Resolved]
  - Arthralgia [Recovered/Resolved]
  - Erythema [Recovered/Resolved]

NARRATIVE: CASE EVENT DATE: 20141103
